FAERS Safety Report 8600050-5 (Version None)
Quarter: 2012Q3

REPORT INFORMATION
  Report Type: 
  Country: None (occurrence: None)
  Receive Date: 20120816
  Receipt Date: 20110926
  Transmission Date: 20120928
  Serious: Yes (Other)
  Sender: FDA-Public Use
  Company Number: PHEH2011US013186

PATIENT
  Sex: Female

DRUGS (2)
  1. ERYTHROMYCIN [Concomitant]
     Dosage: 1 DF, QD
  2. ZELNORM [Suspect]
     Indication: IMPAIRED GASTRIC EMPTYING
     Dosage: 1 DF, BID
     Dates: start: 20080201

REACTIONS (5)
  - NAUSEA [None]
  - INFLUENZA LIKE ILLNESS [None]
  - PAIN [None]
  - APHAGIA [None]
  - SUICIDAL IDEATION [None]
